FAERS Safety Report 9338620 (Version 3)
Quarter: 2015Q4

REPORT INFORMATION
  Report Type: Report from Study
  Country: CA (occurrence: CA)
  Receive Date: 20130610
  Receipt Date: 20151007
  Transmission Date: 20160305
  Serious: Yes (Other)
  Sender: FDA-Public Use
  Company Number: PHHY2013CA057742

PATIENT
  Age: 45 Year
  Sex: Female

DRUGS (1)
  1. GILENYA [Suspect]
     Active Substance: FINGOLIMOD HYDROCHLORIDE
     Indication: RELAPSING-REMITTING MULTIPLE SCLEROSIS
     Dosage: 0.5 MG, QD
     Route: 048
     Dates: start: 20120704, end: 201408

REACTIONS (5)
  - Localised oedema [Recovering/Resolving]
  - Cellulitis [Unknown]
  - Erythema [Recovering/Resolving]
  - Animal bite [Unknown]
  - Feeling hot [Unknown]

NARRATIVE: CASE EVENT DATE: 20130602
